FAERS Safety Report 6297807-5 (Version None)
Quarter: 2009Q3

REPORT INFORMATION
  Report Type: 
  Country: None (occurrence: None)
  Receive Date: 20090805
  Receipt Date: 20090724
  Transmission Date: 20100115
  Serious: Yes (Other)
  Sender: FDA-Public Use
  Company Number: US-PFIZER INC-2009245349

PATIENT
  Sex: Female

DRUGS (7)
  1. GABAPENTIN [Suspect]
     Dosage: 400 MG, 1X/DAY
     Route: 048
     Dates: end: 20090424
  2. REBIF [Suspect]
     Indication: MULTIPLE SCLEROSIS
     Dosage: 44 UG, 3 TIMES/WEEK
     Route: 058
     Dates: start: 20080305, end: 20090413
  3. IBUPROFEN [Suspect]
     Dosage: UNK
     Dates: end: 20090424
  4. CYMBALTA [Suspect]
     Dosage: 60 MG, 1X/DAY
     Route: 048
     Dates: end: 20090424
  5. SYNTHROID [Suspect]
     Dosage: UNK
     Dates: end: 20090424
  6. AMBIEN [Suspect]
     Dosage: 10 MG, AT BEDTIME
     Route: 048
     Dates: end: 20090424
  7. DULCOLAX [Suspect]
     Dosage: UNK
     Dates: end: 20090424

REACTIONS (5)
  - AUTOIMMUNE HEPATITIS [None]
  - FATIGUE [None]
  - HEPATIC NECROSIS [None]
  - PRURITUS [None]
  - TRANSAMINASES INCREASED [None]
